FAERS Safety Report 6517374-8 (Version None)
Quarter: 2009Q4

REPORT INFORMATION
  Report Type: 
  Country: None (occurrence: None)
  Receive Date: 20091218
  Receipt Date: 20091207
  Transmission Date: 20100525
  Serious: Yes (Hospitalization)
  Sender: FDA-Public Use
  Company Number: 236254K09USA

PATIENT
  Age: 22 Year
  Sex: Female
  Weight: 59 kg

DRUGS (2)
  1. REBIF [Suspect]
     Indication: MULTIPLE SCLEROSIS
     Dosage: 22 MCG, 3 IN 1 WEEKS, SUBCUTANEOUS
     Route: 058
     Dates: start: 20080819
  2. ORTO TRI-CYCLEN (CILEST) [Concomitant]

REACTIONS (3)
  - INJECTION SITE ERYTHEMA [None]
  - MENINGITIS VIRAL [None]
  - SINUSITIS [None]
